FAERS Safety Report 24758931 (Version 1)
Quarter: 2024Q4

REPORT INFORMATION
  Report Type: Spontaneous
  Country: GB (occurrence: GB)
  Receive Date: 20241220
  Receipt Date: 20241220
  Transmission Date: 20250115
  Serious: Yes (Other)
  Sender: RHYTHM PHARMACEUTICALS, INC.
  Company Number: GB-Rhythm Pharmaceuticals, Inc.-2024RHM000717

PATIENT
  Age: 17 Year
  Sex: Male

DRUGS (1)
  1. IMCIVREE [Suspect]
     Active Substance: SETMELANOTIDE
     Indication: Product used for unknown indication
     Dosage: 10 MG/ML
     Route: 058

REACTIONS (5)
  - Syncope [Recovering/Resolving]
  - Diarrhoea [Unknown]
  - Vomiting [Unknown]
  - Fatigue [Not Recovered/Not Resolved]
  - Somnolence [Not Recovered/Not Resolved]

NARRATIVE: CASE EVENT DATE: 20241209
